FAERS Safety Report 11171820 (Version 7)
Quarter: 2015Q4

REPORT INFORMATION
  Report Type: Report from Study
  Country: CO (occurrence: CO)
  Receive Date: 20150608
  Receipt Date: 20151231
  Transmission Date: 20160304
  Serious: Yes (Hospitalization, Other)
  Sender: FDA-Public Use
  Company Number: CO-INCYTE CORPORATION-2015IN002457

PATIENT
  Age: 48 Year
  Sex: Female
  Weight: 58 kg

DRUGS (18)
  1. ACETYLSALICYLIC ACID [Concomitant]
     Active Substance: ASPIRIN
     Dosage: 1 DF, QD (IN THE MORNING)
     Route: 065
  2. METOPROLOL [Concomitant]
     Active Substance: METOPROLOL
     Dosage: 1 DF, BID (1 TABLET IN THE MORNING AND 1 TABLET IN THE AFTERNOON)
     Route: 065
  3. ACETYLSALICYLIC ACID [Concomitant]
     Active Substance: ASPIRIN
     Dosage: 1 DF, QD (IN THE MORNING)
     Route: 065
  4. METOPROLOL [Concomitant]
     Active Substance: METOPROLOL
     Indication: HYPERTENSION
     Dosage: 50 MG, UNK
     Route: 065
  5. ACETYLSALICYLIC ACID [Concomitant]
     Active Substance: ASPIRIN
     Dosage: 1 DF, QD (IN THE MORNING)
     Route: 065
  6. METOPROLOL [Concomitant]
     Active Substance: METOPROLOL
     Dosage: 1 DF, BID (1 TABLET IN THE MORNING AND 1 TABLET IN THE AFTERNOON)
     Route: 065
  7. METOPROLOL [Concomitant]
     Active Substance: METOPROLOL
     Dosage: 1 DF, BID (1 TABLET IN THE MORNING AND 1 TABLET IN THE AFTERNOON)
     Route: 065
  8. JAKAFI [Suspect]
     Active Substance: RUXOLITINIB
     Dosage: 20 MG, BID
     Route: 048
  9. ACETYLSALICYLIC ACID [Concomitant]
     Active Substance: ASPIRIN
     Dosage: 1 DF, QD (IN THE MORNING)
     Route: 065
  10. OMEPRAZOLE. [Concomitant]
     Active Substance: OMEPRAZOLE
     Indication: GASTRIC DISORDER
     Dosage: 20 MG, UNK
     Route: 065
  11. OMEPRAZOLE. [Concomitant]
     Active Substance: OMEPRAZOLE
     Dosage: 1 DF, FASTING
     Route: 065
  12. JAKAFI [Suspect]
     Active Substance: RUXOLITINIB
     Indication: MYELOFIBROSIS
     Dosage: 20 MG, BID (1 DOSE IN THE MORNING AND 1 DOSE AT NIGHT)
     Route: 048
     Dates: start: 20140201
  13. JAKAFI [Suspect]
     Active Substance: RUXOLITINIB
     Dosage: 20 MG, QD
     Route: 048
     Dates: start: 20150409
  14. ACETYLSALICYLIC ACID [Concomitant]
     Active Substance: ASPIRIN
     Indication: BLOOD DISORDER
     Dosage: UNKNOWN
     Route: 065
  15. METOPROLOL [Concomitant]
     Active Substance: METOPROLOL
     Dosage: 1 DF, BID (1 TABLET IN THE MORNING AND 1 TABLET IN THE AFTERNOON)
     Route: 065
  16. ACETYLSALICYLIC ACID [Concomitant]
     Active Substance: ASPIRIN
     Dosage: 1 DF, QD (IN THE MORNING)
     Route: 065
  17. METOPROLOL [Concomitant]
     Active Substance: METOPROLOL
     Dosage: 1 DF, BID (1 TABLET IN THE MORNING AND 1 TABLET IN THE AFTERNOON)
     Route: 065
  18. OMEPRAZOLE. [Concomitant]
     Active Substance: OMEPRAZOLE
     Dosage: 1 DF, FASTING
     Route: 065

REACTIONS (16)
  - Malaise [Recovered/Resolved]
  - Asthenia [Unknown]
  - Splenomegaly [Unknown]
  - Thrombosis [Unknown]
  - Rash [Unknown]
  - Immunodeficiency [Unknown]
  - Haematuria [Unknown]
  - Depression [Unknown]
  - Cardiac disorder [Unknown]
  - Leukaemia [Unknown]
  - Peripheral swelling [Unknown]
  - Dizziness [Unknown]
  - Anxiety [Unknown]
  - Headache [Recovered/Resolved]
  - Asphyxia [Recovered/Resolved]
  - Feeling of despair [Unknown]

NARRATIVE: CASE EVENT DATE: 201504
